FAERS Safety Report 20102810 (Version 2)
Quarter: 2022Q1

REPORT INFORMATION
  Report Type: Spontaneous
  Country: CA (occurrence: CA)
  Receive Date: 20211123
  Receipt Date: 20220214
  Transmission Date: 20220424
  Serious: Yes (Death, Hospitalization)
  Sender: FDA-Public Use
  Company Number: CA-TAKEDA-2021TUS073931

PATIENT
  Age: 72 Year
  Sex: Male
  Weight: 88 kg

DRUGS (1)
  1. HIZENTRA [Suspect]
     Active Substance: HUMAN IMMUNOGLOBULIN G
     Indication: Secondary immunodeficiency
     Dosage: 8.0 GRAM, 1/WEEK
     Route: 058
     Dates: start: 20201004

REACTIONS (6)
  - Death [Fatal]
  - Arthritis infective [Fatal]
  - General physical health deterioration [Fatal]
  - Osteomyelitis [Fatal]
  - Sepsis [Fatal]
  - Product dose omission issue [Unknown]
